FAERS Safety Report 15460424 (Version 1)
Quarter: 2018Q4

REPORT INFORMATION
  Report Type: Spontaneous
  Country: IR (occurrence: IR)
  Receive Date: 20181003
  Receipt Date: 20181003
  Transmission Date: 20190204
  Serious: Yes (Life-Threatening)
  Sender: FDA-Public Use
  Company Number: IR-FRESENIUS KABI-FK201810243

PATIENT
  Age: 52 Year
  Sex: Male

DRUGS (4)
  1. PRALIDOXIME IODIDE [Concomitant]
     Indication: PRODUCT USED FOR UNKNOWN INDICATION
     Route: 065
  2. SODIUM BICARBONATE. [Concomitant]
     Active Substance: SODIUM BICARBONATE
     Indication: PRODUCT USED FOR UNKNOWN INDICATION
     Route: 065
  3. ATROPINE (MANUFACTURER UNKNOWN) [Suspect]
     Active Substance: ATROPINE
     Indication: CHEMICAL POISONING
     Dosage: VIA RIGHT SUBCLAVIAN VENOUS LINE
     Route: 042
  4. ATROPINE (MANUFACTURER UNKNOWN) [Suspect]
     Active Substance: ATROPINE
     Dosage: 2.5-3.5 MG/H
     Route: 042

REACTIONS (1)
  - Megacolon [Recovering/Resolving]
